FAERS Safety Report 5842788-9 (Version None)
Quarter: 2008Q3

REPORT INFORMATION
  Report Type: 
  Country: None (occurrence: None)
  Receive Date: 20080811
  Receipt Date: 20080729
  Transmission Date: 20090109
  Serious: Yes (Other)
  Sender: FDA-Public Use
  Company Number: 2008BI010846

PATIENT
  Sex: Female

DRUGS (1)
  1. TYSABRI [Suspect]
     Indication: MULTIPLE SCLEROSIS
     Dosage: 100 MG; QM; IV
     Route: 042
     Dates: start: 20061012, end: 20080423

REACTIONS (2)
  - MELANOSIS [None]
  - SCLERAL DISORDER [None]
